FAERS Safety Report 5430453-1 (Version None)
Quarter: 2007Q3

REPORT INFORMATION
  Report Type: 
  Country: None (occurrence: None)
  Receive Date: 20070830
  Receipt Date: 20070821
  Transmission Date: 20080115
  Serious: Yes (Other)
  Sender: FDA-Public Use
  Company Number: US-JNJFOC-20050202726

PATIENT
  Sex: Female
  Weight: 68.95 kg

DRUGS (4)
  1. REMICADE [Suspect]
     Route: 042
  2. REMICADE [Suspect]
     Dosage: 7 VIALS
     Route: 042
  3. REMICADE [Suspect]
     Indication: RHEUMATOID ARTHRITIS
     Route: 042
  4. ARAVA [Concomitant]

REACTIONS (2)
  - OROPHARYNGEAL NEOPLASM [None]
  - SQUAMOUS CELL CARCINOMA [None]
